FAERS Safety Report 12836872 (Version 1)
Quarter: 2016Q4

REPORT INFORMATION
  Report Type: Spontaneous
  Country: US (occurrence: US)
  Receive Date: 20161011
  Receipt Date: 20161011
  Transmission Date: 20170207
  Serious: Yes (Hospitalization, Other)
  Sender: FDA-Public Use
  Company Number: US-SAOL THERAPEUTICS-2016SAO00821

PATIENT
  Age: 62 Year
  Sex: Female
  Weight: 48.98 kg

DRUGS (8)
  1. MICROZIDE [Suspect]
     Active Substance: HYDROCHLOROTHIAZIDE
  2. MECLIZINE [Suspect]
     Active Substance: MECLIZINE HYDROCHLORIDE
  3. BACLOFEN. [Suspect]
     Active Substance: BACLOFEN
     Indication: SPINAL PAIN
     Dosage: UNK
     Route: 037
     Dates: end: 20140227
  4. DILAUDID [Suspect]
     Active Substance: HYDROMORPHONE HYDROCHLORIDE
     Dosage: .200 MG, DAY
  5. DIAZEPAM. [Suspect]
     Active Substance: DIAZEPAM
  6. DILAUDID [Suspect]
     Active Substance: HYDROMORPHONE HYDROCHLORIDE
     Dosage: 0.16 MG, \DAY
     Route: 037
  7. MORPHINE [Suspect]
     Active Substance: MORPHINE
     Dosage: 2.5 UNK, UNK
     Route: 037
  8. PROPRANOL [Suspect]
     Active Substance: PROPRANOLOL HYDROCHLORIDE

REACTIONS (15)
  - Performance status decreased [Unknown]
  - Medical device discomfort [Unknown]
  - Dizziness [Unknown]
  - Suture related complication [Unknown]
  - Implant site pain [Unknown]
  - Malaise [Unknown]
  - Haemoptysis [Unknown]
  - Pain [Unknown]
  - Neck pain [Unknown]
  - Off label use [Unknown]
  - Gait disturbance [Unknown]
  - Pulmonary congestion [Unknown]
  - Therapy non-responder [Unknown]
  - Overdose [Unknown]
  - Device failure [Unknown]

NARRATIVE: CASE EVENT DATE: 20130221
